FAERS Safety Report 6935616-1 (Version None)
Quarter: 2010Q3

REPORT INFORMATION
  Report Type: 
  Country: None (occurrence: None)
  Receive Date: 20100823
  Receipt Date: 20100809
  Transmission Date: 20110219
  Serious: No
  Sender: FDA-Public Use
  Company Number: US-JNJFOC-20100805993

PATIENT
  Sex: Female

DRUGS (6)
  1. FENTANYL CITRATE [Suspect]
     Indication: PAIN
     Route: 062
  2. INDERAL [Concomitant]
     Indication: TREMOR
     Route: 048
  3. PREMPRO [Concomitant]
     Indication: HORMONE THERAPY
     Route: 048
  4. AMBIEN [Concomitant]
     Indication: SLEEP DISORDER
     Route: 048
  5. XANAX [Concomitant]
     Indication: PANIC ATTACK
     Route: 048
  6. SIMVASTATIN [Concomitant]
     Indication: BLOOD CHOLESTEROL
     Route: 048

REACTIONS (3)
  - DRUG ADMINISTERED AT INAPPROPRIATE SITE [None]
  - DRUG DOSE OMISSION [None]
  - DRUG INEFFECTIVE [None]
